FAERS Safety Report 9664281 (Version 2)
Quarter: 2014Q2

REPORT INFORMATION
  Report Type: Spontaneous
  Country: US (occurrence: US)
  Receive Date: 20131101
  Receipt Date: 20140507
  Transmission Date: 20141212
  Serious: Yes (Hospitalization, Other)
  Sender: FDA-Public Use
  Company Number: US-B.I. PHARMACEUTICALS,INC./RIDGEFIELD-2013-BI-34338BP

PATIENT
  Age: 77 Year
  Sex: Female
  Weight: 89.36 kg

DRUGS (12)
  1. PRADAXA [Suspect]
     Indication: PRODUCT USED FOR UNKNOWN INDICATION
     Dosage: 300 MG
     Route: 048
     Dates: start: 20110223, end: 20121226
  2. COMBIVENT [Concomitant]
     Dosage: 12 PUF
     Route: 065
  3. AMIODARONE [Concomitant]
     Dosage: 2 MG
     Route: 048
  4. SYMBICORT [Concomitant]
     Dosage: 4 PUF
     Route: 065
  5. LASIX [Concomitant]
     Dosage: 40 MG
     Route: 048
  6. GLIMEPIRIDE [Concomitant]
     Dosage: 4 MG
     Route: 048
  7. METFORMIN [Concomitant]
     Dosage: 1000 MG
     Route: 048
  8. METOPROLOL [Concomitant]
     Dosage: 100 MG
     Route: 048
  9. NASONEX [Concomitant]
     Route: 045
  10. SINGULAIR [Concomitant]
     Dosage: 10 MG
     Route: 048
  11. SIMVASTATIN [Concomitant]
     Dosage: 10 MG
     Route: 048
  12. DIOVAN [Concomitant]
     Dosage: 320 MG
     Route: 048

REACTIONS (7)
  - Cardiac arrest [Recovered/Resolved]
  - Respiratory failure [Unknown]
  - Hypoxic-ischaemic encephalopathy [Unknown]
  - Retroperitoneal haematoma [Recovered/Resolved]
  - Haemorrhagic anaemia [Unknown]
  - Renal failure acute [Unknown]
  - Coagulopathy [Unknown]
